FAERS Safety Report 8998086 (Version 19)
Quarter: 2017Q4

REPORT INFORMATION
  Report Type: Report from Study
  Country: NL (occurrence: NL)
  Receive Date: 20130104
  Receipt Date: 20171002
  Transmission Date: 20180321
  Serious: Yes (Death, Life-Threatening, Hospitalization, Other)
  Sender: FDA-Public Use
  Company Number: PHHO2013NL000470

PATIENT
  Age: 69 Year
  Sex: Male
  Weight: 97 kg

DRUGS (18)
  1. SOTALOL. [Suspect]
     Active Substance: SOTALOL
     Dosage: 80 MG, TID
     Route: 065
     Dates: start: 20150727, end: 20151013
  2. BLINDED PLACEBO [Suspect]
     Active Substance: INVESTIGATIONAL PRODUCT
     Dosage: CODE NOT BROKEN
     Route: 058
     Dates: end: 20160810
  3. AMIODARONE [Suspect]
     Active Substance: AMIODARONE
     Dosage: UNK
     Route: 048
     Dates: end: 201306
  4. BLINDED PLACEBO [Suspect]
     Active Substance: INVESTIGATIONAL PRODUCT
     Indication: CARDIOVASCULAR EVENT PROPHYLAXIS
     Dosage: CODE NOT BROKEN
     Route: 058
     Dates: start: 20120801, end: 20150728
  5. BLINDED ACZ885 [Suspect]
     Active Substance: CANAKINUMAB
     Dosage: CODE NOT BROKEN
     Route: 058
     Dates: end: 20160810
  6. BLINDED ACZ885 [Suspect]
     Active Substance: CANAKINUMAB
     Dosage: CODE NOT BROKEN
     Route: 058
     Dates: end: 20160810
  7. METOPROLOL. [Concomitant]
     Active Substance: METOPROLOL
     Indication: CARDIOVASCULAR DISORDER
     Dosage: 100 MG, QD
     Route: 048
     Dates: start: 19990116
  8. AMIODARONE [Suspect]
     Active Substance: AMIODARONE
     Indication: VENTRICULAR TACHYCARDIA
     Dosage: UNK
     Route: 048
     Dates: start: 201205
  9. AMIODARONE [Suspect]
     Active Substance: AMIODARONE
     Dosage: 100 MG, (QD 6 TIMES PER WEEK 200 MG ORAL QD 1 TIME PER WEEK)
     Route: 048
     Dates: start: 20121217, end: 20121221
  10. BLINDED NO TREATMENT RECEIVED [Suspect]
     Active Substance: INVESTIGATIONAL PRODUCT
     Dosage: CODE NOT BROKEN
     Route: 058
     Dates: end: 20160810
  11. BUMETANIDE. [Suspect]
     Active Substance: BUMETANIDE
     Dosage: UNK
     Route: 065
     Dates: start: 20151024
  12. SOTALOL. [Suspect]
     Active Substance: SOTALOL
     Indication: VENTRICULAR TACHYCARDIA
     Dosage: 40 MG, BID
     Route: 065
     Dates: start: 20130806, end: 20131029
  13. SOTALOL. [Suspect]
     Active Substance: SOTALOL
     Dosage: 160 MG, BID
     Route: 065
     Dates: start: 20131031, end: 20150727
  14. BUMETANIDE. [Suspect]
     Active Substance: BUMETANIDE
     Indication: CARDIAC FAILURE
     Dosage: 2.5 MG, BID
     Route: 065
     Dates: start: 20131230, end: 20151013
  15. BLINDED ACZ885 [Suspect]
     Active Substance: CANAKINUMAB
     Indication: CARDIOVASCULAR EVENT PROPHYLAXIS
     Dosage: CODE NOT BROKEN
     Route: 058
     Dates: start: 20120801, end: 20150728
  16. BLINDED NO TREATMENT RECEIVED [Suspect]
     Active Substance: INVESTIGATIONAL PRODUCT
     Indication: CARDIOVASCULAR EVENT PROPHYLAXIS
     Dosage: CODE NOT BROKEN
     Route: 058
     Dates: start: 20120801, end: 20150728
  17. SOTALOL. [Suspect]
     Active Substance: SOTALOL
     Dosage: 160 MG, QD
     Route: 065
     Dates: start: 20151014, end: 20151020
  18. BLINDED ACZ885 [Suspect]
     Active Substance: CANAKINUMAB
     Indication: CARDIOVASCULAR EVENT PROPHYLAXIS
     Dosage: CODE NOT BROKEN
     Route: 058
     Dates: start: 20120801, end: 20150728

REACTIONS (7)
  - Cardiac failure [Fatal]
  - Electrocardiogram QT prolonged [Recovering/Resolving]
  - Cardiac failure chronic [Fatal]
  - Ventricular tachycardia [Recovered/Resolved]
  - Ventricular tachycardia [Recovered/Resolved]
  - Ventricular tachycardia [Recovered/Resolved]
  - Hypokalaemic syndrome [Recovering/Resolving]

NARRATIVE: CASE EVENT DATE: 20121222
